FAERS Safety Report 8247055-4 (Version None)
Quarter: 2012Q1

REPORT INFORMATION
  Report Type: 
  Country: None (occurrence: None)
  Receive Date: 20120330
  Receipt Date: 20120323
  Transmission Date: 20120608
  Serious: Yes (Other)
  Sender: FDA-Public Use
  Company Number: GB-JNJFOC-20120314361

PATIENT

DRUGS (3)
  1. ANTIEMETICS [Concomitant]
     Route: 065
  2. DOXORUBICIN HCL [Suspect]
     Indication: BONE SARCOMA
     Route: 042
  3. CISPLATIN [Suspect]
     Indication: BONE SARCOMA
     Route: 042

REACTIONS (1)
  - NEUROPATHY PERIPHERAL [None]
